FAERS Safety Report 12644829 (Version 2)
Quarter: 2016Q3

REPORT INFORMATION
  Report Type: Spontaneous
  Country: US (occurrence: US)
  Receive Date: 20160811
  Receipt Date: 20160816
  Transmission Date: 20161109
  Serious: No
  Sender: FDA-Public Use
  Company Number: US-PFIZER INC-2016382833

PATIENT
  Age: 64 Year
  Sex: Female
  Weight: 52 kg

DRUGS (4)
  1. PROBIOTICS [Concomitant]
     Active Substance: PROBIOTICS NOS
     Dosage: UNK UNK, DAILY
  2. LIALDA [Concomitant]
     Active Substance: MESALAMINE
     Dosage: 4.8 MG, 1X/DAY, EVERY MORNING
  3. LYRICA [Suspect]
     Active Substance: PREGABALIN
     Indication: FIBROMYALGIA
     Dosage: 50 MG, 2X/DAY, IN MORNING AND IN NIGHT
  4. LYRICA [Suspect]
     Active Substance: PREGABALIN
     Dosage: 50 MG, 1X/DAY, IN THE MORNING

REACTIONS (1)
  - Thinking abnormal [Recovered/Resolved]

NARRATIVE: CASE EVENT DATE: 201607
